FAERS Safety Report 9687312 (Version 2)
Quarter: 2013Q4

REPORT INFORMATION
  Report Type: Report from Study
  Country: CA (occurrence: CA)
  Receive Date: 20131114
  Receipt Date: 20131114
  Transmission Date: 20140711
  Serious: Yes (Hospitalization)
  Sender: FDA-Public Use
  Company Number: CA-ROCHE-1220777

PATIENT
  Sex: Female
  Weight: 72.6 kg

DRUGS (16)
  1. RITUXAN [Suspect]
     Indication: RHEUMATOID ARTHRITIS
     Dosage: LAST DOSE RECEIVED ON 12/FEB/2013.
     Route: 042
     Dates: start: 20070612
  2. ACTONEL [Concomitant]
     Route: 065
  3. MICARDIS PLUS [Concomitant]
     Route: 065
  4. NOVO-MIRTAZAPINE [Concomitant]
     Route: 065
  5. SYNTHROID [Concomitant]
     Route: 065
  6. ASA [Concomitant]
     Route: 065
  7. HYDROMORPH CONTIN [Concomitant]
     Route: 065
  8. METFORMIN [Concomitant]
     Route: 065
  9. JANUVIA [Concomitant]
     Route: 065
  10. CRESTOR [Concomitant]
     Route: 065
  11. FISH OIL [Concomitant]
     Route: 065
  12. DIPHENHYDRAMINE HCL [Concomitant]
     Indication: PREMEDICATION
     Route: 048
     Dates: start: 20090528
  13. ACETAMINOPHEN [Concomitant]
     Indication: PREMEDICATION
     Route: 048
     Dates: start: 20090528
  14. METHYLPREDNISOLONE [Concomitant]
     Indication: PREMEDICATION
     Route: 042
     Dates: start: 20090528
  15. RAMIPRIL [Concomitant]
     Route: 065
  16. ADVAIR DISKUS [Concomitant]
     Route: 065

REACTIONS (2)
  - Pneumonia [Unknown]
  - Incisional hernia [Unknown]
